FAERS Safety Report 11415986 (Version 1)
Quarter: 2015Q3

REPORT INFORMATION
  Report Type: Spontaneous
  Country: BR (occurrence: BR)
  Receive Date: 20150825
  Receipt Date: 20150825
  Transmission Date: 20151125
  Serious: Yes (Hospitalization)
  Sender: FDA-Public Use
  Company Number: BR-ASTRAZENECA-2015SE79784

PATIENT
  Age: 64 Year
  Sex: Female
  Weight: 79 kg

DRUGS (8)
  1. NEXIUM [Suspect]
     Active Substance: ESOMEPRAZOLE MAGNESIUM
     Indication: GASTRITIS
     Route: 048
  2. NEXIUM [Suspect]
     Active Substance: ESOMEPRAZOLE MAGNESIUM
     Indication: HELICOBACTER INFECTION
     Dosage: MEDLEY
     Route: 048
  3. NEXIUM [Suspect]
     Active Substance: ESOMEPRAZOLE MAGNESIUM
     Indication: GASTRITIS
     Dosage: MEDLEY
     Route: 048
  4. NEXIUM [Suspect]
     Active Substance: ESOMEPRAZOLE MAGNESIUM
     Indication: GASTRITIS
     Route: 048
     Dates: start: 2010
  5. NEXIUM [Suspect]
     Active Substance: ESOMEPRAZOLE MAGNESIUM
     Indication: HELICOBACTER INFECTION
     Route: 048
  6. DIACEREIN [Concomitant]
     Active Substance: DIACEREIN
     Indication: OSTEOARTHRITIS
     Route: 048
     Dates: start: 2005
  7. NEXIUM [Suspect]
     Active Substance: ESOMEPRAZOLE MAGNESIUM
     Indication: HELICOBACTER INFECTION
     Route: 048
     Dates: start: 2010
  8. CALCIUM [Concomitant]
     Active Substance: CALCIUM
     Indication: OSTEOPOROSIS
     Dosage: DAILY
     Route: 048
     Dates: start: 1999

REACTIONS (5)
  - Drug ineffective [Recovered/Resolved]
  - Blood cholesterol increased [Recovered/Resolved]
  - Abdominal pain upper [Recovered/Resolved]
  - Diverticulitis [Recovered/Resolved]
  - Diverticular perforation [Recovered/Resolved]

NARRATIVE: CASE EVENT DATE: 2012
